FAERS Safety Report 24746881 (Version 2)
Quarter: 2025Q1

REPORT INFORMATION
  Report Type: Report from Study
  Country: CA (occurrence: CA)
  Receive Date: 20241218
  Receipt Date: 20250113
  Transmission Date: 20250409
  Serious: Yes (Hospitalization)
  Sender: ROCHE
  Company Number: CA-ROCHE-10000155528

PATIENT
  Sex: Female

DRUGS (1)
  1. OCREVUS [Suspect]
     Active Substance: OCRELIZUMAB
     Indication: Relapsing-remitting multiple sclerosis
     Dosage: MORE DOSAGE INFORMATION IS 300 MG AT DAY 0 AND 14, THEN 600 MG EVERY 6 MONTHS
     Route: 042
     Dates: start: 20211124

REACTIONS (3)
  - Meningitis viral [Unknown]
  - Cardiac disorder [Unknown]
  - Infection [Unknown]
